FAERS Safety Report 5727650-4 (Version None)
Quarter: 2008Q2

REPORT INFORMATION
  Report Type: 
  Country: None (occurrence: None)
  Receive Date: 20080505
  Receipt Date: 20080430
  Transmission Date: 20081010
  Serious: Yes (Hospitalization)
  Sender: FDA-Public Use
  Company Number: A0726168A

PATIENT
  Age: 50 Year
  Sex: Female

DRUGS (1)
  1. ANTAK [Suspect]
     Indication: PROPHYLAXIS
     Route: 065
     Dates: start: 20080428, end: 20080428

REACTIONS (2)
  - HYPERAEMIA [None]
  - INJECTION SITE PRURITUS [None]
